FAERS Safety Report 6546800-3 (Version None)
Quarter: 2010Q1

REPORT INFORMATION
  Report Type: 
  Country: None (occurrence: None)
  Receive Date: 20100119
  Receipt Date: 20100104
  Transmission Date: 20100710
  Serious: Yes (Hospitalization)
  Sender: FDA-Public Use
  Company Number: 2009AC000206

PATIENT
  Age: 65 Year
  Sex: Male

DRUGS (3)
  1. DIGOXIN [Suspect]
     Dosage: 0.125 MG; UNKNOWN; PO
     Route: 048
     Dates: start: 20080918
  2. INSULIN [Concomitant]
  3. LOVENOX [Concomitant]

REACTIONS (12)
  - ANXIETY [None]
  - CARDIAC DISORDER [None]
  - DECREASED INTEREST [None]
  - DIABETES MELLITUS [None]
  - DYSLIPIDAEMIA [None]
  - DYSPNOEA [None]
  - ECONOMIC PROBLEM [None]
  - HYPERTENSION [None]
  - MULTIPLE INJURIES [None]
  - OBESITY [None]
  - PAIN [None]
  - RENAL FAILURE ACUTE [None]
